FAERS Safety Report 10083847 (Version 7)
Quarter: 2014Q3

REPORT INFORMATION
  Report Type: Spontaneous
  Country: IT (occurrence: None)
  Receive Date: 20140415
  Receipt Date: 20140725
  Transmission Date: 20150326
  Serious: Yes (Hospitalization)
  Sender: FDA-Public Use
  Company Number: AUR-APL-2014-04464

PATIENT
  Age: 34 Year
  Sex: Female

DRUGS (3)
  1. AMLODIPINA [Suspect]
     Active Substance: AMLODIPINE BESYLATE
     Indication: PRODUCT USED FOR UNKNOWN INDICATION
     Dosage: 14 DF,TOTAL, ORAL
     Route: 048
     Dates: start: 20130925, end: 20130925
  2. DELTACORTENE (PREDNISONE) TABLET, 5MG [Suspect]
     Active Substance: PREDNISONE
     Indication: PRODUCT USED FOR UNKNOWN INDICATION
     Dosage: 6 DF,TOTAL, ORAL
     Route: 048
     Dates: start: 20130925, end: 20130925
  3. RAMIPRIL. [Suspect]
     Active Substance: RAMIPRIL
     Indication: PRODUCT USED FOR UNKNOWN INDICATION
     Route: 048
     Dates: start: 20130925, end: 20130925

REACTIONS (5)
  - Intentional self-injury [None]
  - Blood alcohol increased [None]
  - Intentional overdose [None]
  - Hypotension [None]
  - Drug abuse [None]

NARRATIVE: CASE EVENT DATE: 20130925
